FAERS Safety Report 5331118-7 (Version None)
Quarter: 2007Q2

REPORT INFORMATION
  Report Type: 
  Country: None (occurrence: None)
  Receive Date: 20070518
  Receipt Date: 20070518
  Transmission Date: 20071010
  Serious: No
  Sender: FDA-Public Use
  Company Number: None

PATIENT
  Age: 31 Year
  Sex: Female
  Weight: 89 kg

DRUGS (1)
  1. CLOZAPINE [Suspect]
     Dosage: 25 MG DAILY PO
     Route: 048

REACTIONS (1)
  - TACHYCARDIA [None]
